FAERS Safety Report 23726497 (Version 1)
Quarter: 2024Q2

REPORT INFORMATION
  Report Type: Spontaneous
  Country: US (occurrence: None)
  Receive Date: 20240409
  Receipt Date: 20240409
  Transmission Date: 20240715
  Serious: Yes (Death)
  Sender: FDA-Public Use
  Company Number: None

PATIENT
  Sex: Female

DRUGS (6)
  1. BOTOX [Suspect]
     Active Substance: ONABOTULINUMTOXINA
     Indication: Migraine without aura
     Dosage: OTHER STRENGTH : 200 UNIT;?OTHER QUANTITY : 155 UNITS;?OTHER FREQUENCY : EVERY 3 MONTHS;?
     Route: 030
  2. AMLODIPINE [Concomitant]
     Active Substance: AMLODIPINE BESYLATE
  3. ELIQUIS [Concomitant]
     Active Substance: APIXABAN
  4. LEVOTHYROXINE [Concomitant]
     Active Substance: LEVOTHYROXINE\LEVOTHYROXINE SODIUM
  5. OMEPRAZOLE [Concomitant]
     Active Substance: OMEPRAZOLE
  6. PRAVASTATIN [Concomitant]
     Active Substance: PRAVASTATIN

REACTIONS (1)
  - Death [None]
